FAERS Safety Report 16745244 (Version 2)
Quarter: 2019Q4

REPORT INFORMATION
  Report Type: Spontaneous
  Country: US (occurrence: US)
  Receive Date: 20190827
  Receipt Date: 20191030
  Transmission Date: 20200122
  Serious: Yes (Hospitalization)
  Sender: FDA-Public Use
  Company Number: US-PFIZER INC-2019253363

PATIENT
  Age: 60 Year
  Sex: Female
  Weight: 47.62 kg

DRUGS (2)
  1. RELPAX [Suspect]
     Active Substance: ELETRIPTAN HYDROBROMIDE
     Indication: MIGRAINE
     Dosage: 40 MG, AS NEEDED
  2. RELPAX [Suspect]
     Active Substance: ELETRIPTAN HYDROBROMIDE
     Dosage: 40 MG, AS NEEDED

REACTIONS (5)
  - Abdominal discomfort [Recovered/Resolved]
  - Cardiac disorder [Recovered/Resolved]
  - Malaise [Unknown]
  - Recalled product administered [Recovered/Resolved]
  - Nausea [Unknown]
